FAERS Safety Report 22168517 (Version 3)
Quarter: 2023Q2

REPORT INFORMATION
  Report Type: Spontaneous
  Country: US (occurrence: US)
  Receive Date: 20230403
  Receipt Date: 20230526
  Transmission Date: 20230721
  Serious: Yes (Other)
  Sender: FDA-Public Use
  Company Number: US-PFIZER INC-PV202300061094

PATIENT
  Age: 59 Year
  Sex: Male
  Weight: 99.773 kg

DRUGS (1)
  1. ZIRABEV [Suspect]
     Active Substance: BEVACIZUMAB-BVZR
     Indication: Rectal cancer
     Dosage: 490 MG (Q 14 DAYS)
     Route: 042
     Dates: start: 20230503

REACTIONS (1)
  - Dental operation [Unknown]
